FAERS Safety Report 9568897 (Version 1)
Quarter: 2013Q3

REPORT INFORMATION
  Report Type: Spontaneous
  Country: US (occurrence: US)
  Receive Date: 20130930
  Receipt Date: 20130930
  Transmission Date: 20140515
  Serious: No
  Sender: FDA-Public Use
  Company Number: US-AMGEN-USASP2013060630

PATIENT
  Age: 47 Year
  Sex: Female
  Weight: 79.37 kg

DRUGS (5)
  1. ENBREL [Suspect]
     Indication: PRODUCT USED FOR UNKNOWN INDICATION
     Dosage: 50 MG, QWK
     Route: 058
     Dates: start: 20130212
  2. FOLIC ACID [Concomitant]
     Dosage: 1 MG, UNK
  3. IBUPROFEN [Concomitant]
     Dosage: 800 MG, UNK
  4. VITAMIN D                          /00107901/ [Concomitant]
     Dosage: 2000 IU, UNK
  5. NAPROXEN SOD [Concomitant]
     Dosage: 220 MG, UNK

REACTIONS (1)
  - Injection site pain [Recovered/Resolved]
